FAERS Safety Report 12435183 (Version 1)
Quarter: 2016Q2

REPORT INFORMATION
  Report Type: Spontaneous
  Country: US (occurrence: US)
  Receive Date: 20160603
  Receipt Date: 20160603
  Transmission Date: 20160815
  Serious: No
  Sender: FDA-Public Use
  Company Number: US-ROCHE-1623837

PATIENT
  Age: 52 Year
  Sex: Female

DRUGS (1)
  1. XELODA [Suspect]
     Active Substance: CAPECITABINE
     Indication: PRODUCT USED FOR UNKNOWN INDICATION
     Route: 048
     Dates: start: 20150806, end: 20150817

REACTIONS (4)
  - Diarrhoea [Unknown]
  - Fatigue [Unknown]
  - Vomiting [Unknown]
  - Weight decreased [Unknown]

NARRATIVE: CASE EVENT DATE: 20150806
